FAERS Safety Report 4626117-4 (Version None)
Quarter: 2005Q1

REPORT INFORMATION
  Report Type: 
  Country: None (occurrence: None)
  Receive Date: 20050330
  Receipt Date: 20050317
  Transmission Date: 20050727
  Serious: Yes (Other)
  Sender: FDA-Public Use
  Company Number: 2005045319

PATIENT
  Age: 72 Year
  Sex: Female
  Weight: 117.9352 kg

DRUGS (3)
  1. ZYVOX [Suspect]
     Indication: STAPHYLOCOCCAL INFECTION
     Dosage: INTRAVENOUS
     Route: 042
     Dates: start: 20050221, end: 20050301
  2. ZYVOX [Suspect]
     Indication: STAPHYLOCOCCAL INFECTION
     Dosage: 1200 MG (600 MG , BID), ORAL
     Route: 048
     Dates: start: 20050302, end: 20050307
  3. MOBIC [Concomitant]

REACTIONS (19)
  - ARTERIAL DISORDER [None]
  - CONDITION AGGRAVATED [None]
  - DRUG INEFFECTIVE [None]
  - DYSPHAGIA [None]
  - ERYTHEMA [None]
  - HEADACHE [None]
  - HERPES SIMPLEX [None]
  - HYPERHIDROSIS [None]
  - IMPAIRED HEALING [None]
  - NECK PAIN [None]
  - OROPHARYNGEAL SWELLING [None]
  - PAIN IN JAW [None]
  - PRURITUS [None]
  - PYREXIA [None]
  - RASH [None]
  - SWOLLEN TONGUE [None]
  - URTICARIA [None]
  - VISION BLURRED [None]
  - VISUAL DISTURBANCE [None]
